FAERS Safety Report 7024225-4 (Version None)
Quarter: 2010Q3

REPORT INFORMATION
  Report Type: 
  Country: None (occurrence: None)
  Receive Date: 20100929
  Receipt Date: 20100917
  Transmission Date: 20110219
  Serious: Yes (Death, Hospitalization, Other)
  Sender: FDA-Public Use
  Company Number: CLOF-1000749

PATIENT
  Age: 22 Year
  Sex: Male
  Weight: 76.8 kg

DRUGS (41)
  1. CLOLAR [Suspect]
     Indication: ACUTE MYELOID LEUKAEMIA
     Dosage: 21 MG, QD, INTRAVENOUS
     Route: 042
     Dates: start: 20090723, end: 20090726
  2. FLUDARA [Suspect]
     Indication: ACUTE MYELOID LEUKAEMIA
     Dosage: 62 MG, QD, INTRAVENOUS
     Route: 042
     Dates: start: 20090723, end: 20090726
  3. BUSULFAN (BUSULFAN) [Suspect]
     Indication: ACUTE MYELOID LEUKAEMIA
     Dosage: 299 MG, QD, INTRAVENOUS, 373 MG, QD, INTRAVENOUS
     Route: 042
     Dates: start: 20090723, end: 20090724
  4. BUSULFAN (BUSULFAN) [Suspect]
     Indication: ACUTE MYELOID LEUKAEMIA
     Dosage: 299 MG, QD, INTRAVENOUS, 373 MG, QD, INTRAVENOUS
     Route: 042
     Dates: start: 20090725, end: 20090726
  5. ACYCLOVIR [Concomitant]
  6. AZTREONAM (AZTREONAM) [Concomitant]
  7. CADEXZOMER IODINE (CADEXOMER IODINE) [Concomitant]
  8. CYCLOSPORINE [Concomitant]
  9. DAPTOMYCIN [Concomitant]
  10. ERYTHROMYCIN [Concomitant]
  11. GATIFLOXACIN [Concomitant]
  12. HEPARIN [Concomitant]
  13. HEXACHLOROPHENE (HEXACHLOROPHENE) [Concomitant]
  14. HYDROCORTISONE SODIUM SUCCINATE [Concomitant]
  15. HYDROMORPHONE HCL [Concomitant]
  16. INSULIN DETEMIR (INSULIN DETEMIR) [Concomitant]
  17. INSULIN HUMAN (INSULIN HUMAN) [Concomitant]
  18. LEVALBUTEROL HYDROCHLORIDE (LEVOSALBUTAMOL HYDROCHLORIDE) [Concomitant]
  19. LIDOCAINE (LIDOCAINE HYDROCHLORIDE) [Concomitant]
  20. METHYLPREDNISOLONE [Concomitant]
  21. MUPIROCIN [Concomitant]
  22. PANTOPRAZOLE SODIUM [Concomitant]
  23. PHYTONADIONE [Concomitant]
  24. POLYVINYL ALCOHOL (POLYVINYL ALCOHOL) [Concomitant]
  25. PROBENECID [Concomitant]
  26. SODIUM CHLORIDE 0.9% [Concomitant]
  27. TIGECYCLINE (TIGECYCLINE) [Concomitant]
  28. URSODIOL [Concomitant]
  29. VALTREX [Concomitant]
  30. AMYLASE W (AMYLASE, LIPASE, PROTEASE) [Concomitant]
  31. DEXTROSE [Concomitant]
  32. DIPHENHYDRAMINE HCL [Concomitant]
  33. EMOLLIENTS AND PROTECTIVES [Concomitant]
  34. FILGRASTIM (FILGRASTIM) [Concomitant]
  35. NYSTATIN [Concomitant]
  36. POTASSIUM CHLORIDE [Concomitant]
  37. SODIUM BICARBONATE IN PLASTIC CONTAINER [Concomitant]
  38. WHITE PETROLEUM (PETROLATUM) [Concomitant]
  39. ZINC OXIDE (ZINC OXIDE) [Concomitant]
  40. TACROLIMUS [Concomitant]
  41. METHOTREXATE [Concomitant]

REACTIONS (13)
  - ACUTE GRAFT VERSUS HOST DISEASE [None]
  - ACUTE RESPIRATORY FAILURE [None]
  - DIALYSIS [None]
  - HERPES ZOSTER OPHTHALMIC [None]
  - PNEUMONIA [None]
  - PNEUMONIA FUNGAL [None]
  - PNEUMONIA VIRAL [None]
  - PULMONARY HAEMORRHAGE [None]
  - PULMONARY OEDEMA [None]
  - RENAL FAILURE ACUTE [None]
  - RESPIRATORY DISTRESS [None]
  - SHOCK [None]
  - UNRESPONSIVE TO STIMULI [None]
